FAERS Safety Report 16265244 (Version 3)
Quarter: 2019Q2

REPORT INFORMATION
  Report Type: Spontaneous
  Country: FR (occurrence: FR)
  Receive Date: 20190502
  Receipt Date: 20190618
  Transmission Date: 20190711
  Serious: Yes (Other)
  Sender: FDA-Public Use
  Company Number: FR-ABBVIE-19K-056-2761671-00

PATIENT
  Age: 36 Year
  Sex: Female
  Weight: 70 kg

DRUGS (2)
  1. HUMIRA [Suspect]
     Active Substance: ADALIMUMAB
     Indication: PSORIASIS
     Dosage: FOR AROUND 7 YEARS
     Route: 058
  2. HUMIRA [Suspect]
     Active Substance: ADALIMUMAB
     Indication: PSORIATIC ARTHROPATHY

REACTIONS (11)
  - Weight decreased [Unknown]
  - Abdominal pain [Unknown]
  - Asthenia [Unknown]
  - Cerebral disorder [Unknown]
  - Headache [Unknown]
  - Meningeal disorder [Unknown]
  - Abdominal lymphadenopathy [Unknown]
  - Speech disorder [Unknown]
  - Extrapulmonary tuberculosis [Unknown]
  - Disseminated tuberculosis [Unknown]
  - Pulmonary tuberculosis [Unknown]

NARRATIVE: CASE EVENT DATE: 201903
